FAERS Safety Report 7729294-1 (Version None)
Quarter: 2011Q3

REPORT INFORMATION
  Report Type: 
  Country: None (occurrence: None)
  Receive Date: 20110831
  Receipt Date: 20110831
  Transmission Date: 20111222
  Serious: Yes (Hospitalization)
  Sender: FDA-Public Use
  Company Number: None

PATIENT
  Sex: Female
  Weight: 62 kg

DRUGS (3)
  1. BEVACIZUMAB (RHUMAB VEGF) [Suspect]
     Dosage: 929 MG
  2. TAXOL [Suspect]
     Dosage: 326 MG
  3. CARBOPLATIN [Suspect]
     Dosage: 637 MG

REACTIONS (3)
  - LARGE INTESTINE PERFORATION [None]
  - HAEMORRHAGE [None]
  - DIARRHOEA [None]
